FAERS Safety Report 5177220-4 (Version None)
Quarter: 2006Q4

REPORT INFORMATION
  Report Type: 
  Country: None (occurrence: None)
  Receive Date: 20061218
  Receipt Date: 20061024
  Transmission Date: 20070319
  Serious: Yes (Hospitalization, Disabling)
  Sender: FDA-Public Use
  Company Number: US-ELI_LILLY_AND_COMPANY-US200610004464

PATIENT
  Age: 75 Year
  Sex: Male

DRUGS (16)
  1. NORVASC [Concomitant]
     Dosage: 5 MG, EACH MORNING
     Route: 048
  2. PROSCAR                                 /USA/ [Concomitant]
     Dosage: 5 MG, UNK
     Route: 048
  3. PLAVIX                                  /UNK/ [Concomitant]
     Dosage: 75 MG, EACH MORNING
     Route: 048
  4. FOLATE SODIUM [Concomitant]
     Dosage: 1 MG, EACH MORNING
     Route: 048
  5. VITAMIN B-12 [Concomitant]
     Dosage: UNK, MONTHLY (1/M)
     Route: 030
  6. PROTONIX [Concomitant]
     Dosage: 40 MG, EACH MORNING
     Route: 048
  7. COLACE [Concomitant]
     Dosage: 100 MG, 2/D
     Route: 048
  8. THIAMINE HCL [Concomitant]
     Dosage: 100 MG, EACH MORNING
     Route: 048
  9. CYMBALTA [Suspect]
     Indication: ANXIETY
     Dosage: 60 MG, DAILY (1/D)
     Route: 048
     Dates: start: 20060714, end: 20061024
  10. ZYPREXA [Suspect]
     Dosage: 5 MG, UNK
     Route: 048
     Dates: end: 20060101
  11. ZYPREXA [Suspect]
     Dosage: 7.5 MG, DAILY (1/D)
     Route: 048
     Dates: start: 20061117
  12. PROZAC [Concomitant]
  13. ABILIFY [Concomitant]
     Dosage: UNK, UNK
  14. ZOLOFT [Concomitant]
     Dosage: UNK, DAILY (1/D)
     Route: 048
     Dates: end: 20060101
  15. ZOLOFT [Concomitant]
     Dosage: 150 MG, DAILY (1/D)
     Route: 048
     Dates: start: 20061115
  16. LUVOX [Concomitant]

REACTIONS (9)
  - DEPRESSED MOOD [None]
  - EYE SWELLING [None]
  - EYELID OEDEMA [None]
  - FEELING GUILTY [None]
  - LYMPHOEDEMA [None]
  - OBSESSIVE THOUGHTS [None]
  - PERONEAL NERVE PALSY [None]
  - SUICIDAL IDEATION [None]
  - URINARY RETENTION [None]
